FAERS Safety Report 24831844 (Version 1)
Quarter: 2025Q1

REPORT INFORMATION
  Report Type: Spontaneous
  Country: US (occurrence: US)
  Receive Date: 20250110
  Receipt Date: 20250110
  Transmission Date: 20250409
  Serious: No
  Sender: PFIZER
  Company Number: US-PFIZER INC-202500003579

PATIENT
  Age: 45 Year
  Sex: Female

DRUGS (7)
  1. PAXLOVID [Suspect]
     Active Substance: NIRMATRELVIR\RITONAVIR
     Indication: Post-acute COVID-19 syndrome
     Route: 048
     Dates: start: 202302, end: 2023
  2. NALTREXONE [Concomitant]
     Active Substance: NALTREXONE
  3. CETIRIZINE [Concomitant]
     Active Substance: CETIRIZINE HYDROCHLORIDE
  4. NORETHINDRONE ACETATE-ETHINYL ESTRADIOL-IRON [Concomitant]
  5. LUMBROKINASE [Concomitant]
  6. SERRAPEPTASE [Concomitant]
     Active Substance: SERRAPEPTASE
  7. PALMIDROL [Concomitant]
     Active Substance: PALMIDROL

REACTIONS (10)
  - Rash [Recovering/Resolving]
  - Headache [Recovering/Resolving]
  - Food intolerance [Recovering/Resolving]
  - Condition aggravated [Recovering/Resolving]
  - Hypertension [Unknown]
  - Constipation [Unknown]
  - Off label use [Unknown]
  - Product use issue [Unknown]
  - Off label use [Unknown]
  - Drug effective for unapproved indication [Unknown]

NARRATIVE: CASE EVENT DATE: 20230101
